FAERS Safety Report 5109680-9 (Version None)
Quarter: 2006Q3

REPORT INFORMATION
  Report Type: 
  Country: None (occurrence: None)
  Receive Date: 20060918
  Receipt Date: 20060831
  Transmission Date: 20061208
  Serious: Yes (Death)
  Sender: FDA-Public Use
  Company Number: 8016356

PATIENT
  Age: 23 Year
  Sex: Female
  Weight: 80 kg

DRUGS (4)
  1. KEPPRA [Suspect]
     Indication: EPILEPSY
     Dosage: PO
     Route: 048
  2. URBANYL [Concomitant]
  3. LAMICTAL [Concomitant]
  4. SPECIAFOLDINE [Concomitant]

REACTIONS (5)
  - CONDITION AGGRAVATED [None]
  - DRUG EXPOSURE DURING PREGNANCY [None]
  - PARTIAL SEIZURES WITH SECONDARY GENERALISATION [None]
  - PREGNANCY [None]
  - SUDDEN DEATH [None]
